FAERS Safety Report 23468625 (Version 1)
Quarter: 2024Q1

REPORT INFORMATION
  Report Type: Spontaneous
  Country: US (occurrence: None)
  Receive Date: 20240201
  Receipt Date: 20240201
  Transmission Date: 20240409
  Serious: No
  Sender: FDA-Public Use
  Company Number: None

PATIENT
  Age: 5 Year
  Sex: Female

DRUGS (3)
  1. KALYDECO [Suspect]
     Active Substance: IVACAFTOR
  2. PULMOZYME [Concomitant]
     Active Substance: DORNASE ALFA
  3. MVW Nutritionals Vitamins [Concomitant]

REACTIONS (8)
  - Abnormal behaviour [None]
  - Euphoric mood [None]
  - Mania [None]
  - Thinking abnormal [None]
  - Screaming [None]
  - Crying [None]
  - Communication disorder [None]
  - Adverse drug reaction [None]

NARRATIVE: CASE EVENT DATE: 20240131
